FAERS Safety Report 10413839 (Version 2)
Quarter: 2014Q3

REPORT INFORMATION
  Report Type: Spontaneous
  Country: NO (occurrence: None)
  Receive Date: 20140825
  Receipt Date: 20140915
  Transmission Date: 20150326
  Serious: Yes (Other)
  Sender: FDA-Public Use
  Company Number: NGX_02540_2014

PATIENT
  Sex: Female

DRUGS (3)
  1. OXYNORM [Concomitant]
     Active Substance: OXYCODONE HYDROCHLORIDE
  2. PARACETAMOL [Concomitant]
     Active Substance: ACETAMINOPHEN
  3. QUTENZA [Suspect]
     Active Substance: CAPSAICIN
     Indication: NEUROPATHY PERIPHERAL
     Dosage: 1 DF CUTANEOUS PATCH TRANSDERMAL
     Dates: start: 20140603, end: 20140603

REACTIONS (7)
  - Hypersensitivity [None]
  - Pneumonia [None]
  - Pneumothorax [None]
  - Pain [None]
  - Arthralgia [None]
  - Hypoaesthesia oral [None]
  - Dyspnoea [None]

NARRATIVE: CASE EVENT DATE: 20140603
